FAERS Safety Report 21646829 (Version 2)
Quarter: 2022Q4

REPORT INFORMATION
  Report Type: Spontaneous
  Country: US (occurrence: US)
  Receive Date: 20221127
  Receipt Date: 20221209
  Transmission Date: 20230112
  Serious: Yes (Hospitalization)
  Sender: FDA-Public Use
  Company Number: US-TEVA-2022-US-2827903

PATIENT
  Age: 50 Year
  Sex: Male

DRUGS (3)
  1. ARGATROBAN [Suspect]
     Active Substance: ARGATROBAN
     Indication: Thrombosis with thrombocytopenia syndrome
     Route: 065
  2. METHYLPREDNISOLONE [Suspect]
     Active Substance: METHYLPREDNISOLONE
     Indication: Thrombosis with thrombocytopenia syndrome
     Dosage: ON THE FIRST DAY, 125 MG
     Route: 065
  3. HUMAN IMMUNOGLOBULIN G [Concomitant]
     Active Substance: HUMAN IMMUNOGLOBULIN G
     Indication: Thrombosis with thrombocytopenia syndrome
     Dosage: 1 G/KG DAILY FOR 2 DAYS
     Route: 042

REACTIONS (3)
  - Drug ineffective [Recovering/Resolving]
  - Thrombosis with thrombocytopenia syndrome [Recovered/Resolved]
  - Hepatic function abnormal [Recovering/Resolving]
